FAERS Safety Report 5914838-2 (Version None)
Quarter: 2008Q4

REPORT INFORMATION
  Report Type: 
  Country: None (occurrence: None)
  Receive Date: 20081010
  Receipt Date: 20081001
  Transmission Date: 20090506
  Serious: Yes (Other)
  Sender: FDA-Public Use
  Company Number: PHHY2008GB22160

PATIENT
  Sex: Male

DRUGS (3)
  1. CLOZARIL [Suspect]
     Indication: SCHIZOPHRENIA
     Dosage: 600 MG, QD
     Dates: start: 20060222
  2. CLOZARIL [Suspect]
     Dosage: 500 MG DAILY
  3. SERTRALINE [Concomitant]
     Indication: DEPRESSION
     Dosage: 200 MG DAILY
     Route: 048

REACTIONS (5)
  - COUGH [None]
  - DYSKINESIA [None]
  - FALL [None]
  - LOSS OF CONSCIOUSNESS [None]
  - LOSS OF CONTROL OF LEGS [None]
